FAERS Safety Report 9261594 (Version 2)
Quarter: 2013Q2

REPORT INFORMATION
  Report Type: Spontaneous
  Country: US (occurrence: US)
  Receive Date: 20130429
  Receipt Date: 20130513
  Transmission Date: 20140414
  Serious: Yes (Other)
  Sender: FDA-Public Use
  Company Number: US-PFIZER INC-2013127536

PATIENT
  Age: 66 Year
  Sex: Female

DRUGS (1)
  1. EPINEPHRINE [Suspect]
     Dosage: UNK

REACTIONS (3)
  - Drug hypersensitivity [Unknown]
  - Heart rate irregular [Unknown]
  - Heart rate increased [Unknown]
